APPROVED DRUG PRODUCT: HYDROCODONE BITARTRATE AND ACETAMINOPHEN
Active Ingredient: ACETAMINOPHEN; HYDROCODONE BITARTRATE
Strength: 300MG;5MG
Dosage Form/Route: TABLET;ORAL
Application: A209036 | Product #001 | TE Code: AA
Applicant: ABHAI LLC
Approved: Jun 21, 2017 | RLD: No | RS: No | Type: RX